FAERS Safety Report 16924803 (Version 1)
Quarter: 2019Q4

REPORT INFORMATION
  Report Type: Spontaneous
  Country: US (occurrence: US)
  Receive Date: 20191015
  Receipt Date: 20191015
  Transmission Date: 20200122
  Serious: No
  Sender: FDA-Public Use
  Company Number: None

PATIENT
  Age: 36 Year
  Sex: Female
  Weight: 72 kg

DRUGS (12)
  1. PROPRANOLOL [Concomitant]
     Active Substance: PROPRANOLOL HYDROCHLORIDE
  2. FOLIC ACID. [Concomitant]
     Active Substance: FOLIC ACID
  3. OMEGA-3 ACIDS [Concomitant]
     Active Substance: OMEGA-3 FATTY ACIDS
  4. DULOXETINE. [Concomitant]
     Active Substance: DULOXETINE
  5. METHOTREXATE. [Concomitant]
     Active Substance: METHOTREXATE
  6. LOSARTAN/HCTZ [Concomitant]
     Active Substance: HYDROCHLOROTHIAZIDE\LOSARTAN
  7. VITAMINS [Concomitant]
     Active Substance: VITAMINS
  8. TRAMADOL. [Concomitant]
     Active Substance: TRAMADOL
  9. ENBREL [Suspect]
     Active Substance: ETANERCEPT
     Indication: RHEUMATOID ARTHRITIS
     Dosage: ?          QUANTITY:1 INJECTION(S);OTHER FREQUENCY:1 PER WEEK;?
     Route: 058
     Dates: start: 20190905
  10. IBUPROFEN. [Concomitant]
     Active Substance: IBUPROFEN
  11. BENADRYL [Concomitant]
     Active Substance: DIPHENHYDRAMINE HYDROCHLORIDE
  12. ENSYCE [Concomitant]

REACTIONS (5)
  - Injection site erythema [None]
  - Injection site inflammation [None]
  - Injection site pruritus [None]
  - Injection site swelling [None]
  - Injection site reaction [None]

NARRATIVE: CASE EVENT DATE: 20190912
